FAERS Safety Report 13982045 (Version 1)
Quarter: 2017Q3

REPORT INFORMATION
  Report Type: Spontaneous
  Country: US (occurrence: None)
  Receive Date: 20170916
  Receipt Date: 20170916
  Transmission Date: 20171128
  Serious: No
  Sender: FDA-Public Use
  Company Number: None

PATIENT
  Age: 21 Year
  Sex: Male

DRUGS (1)
  1. ORKAMBI [Suspect]
     Active Substance: IVACAFTOR\LUMACAFTOR
     Indication: CYSTIC FIBROSIS
     Dosage: 200MG/125MG 2BID ORAL
     Route: 048
     Dates: start: 20170814

REACTIONS (7)
  - Abdominal pain [None]
  - Asthma [None]
  - Cough [None]
  - Condition aggravated [None]
  - Wheezing [None]
  - Dehydration [None]
  - Cystic fibrosis [None]

NARRATIVE: CASE EVENT DATE: 20170916
